FAERS Safety Report 24363009 (Version 1)
Quarter: 2024Q3

REPORT INFORMATION
  Report Type: Spontaneous
  Country: US (occurrence: None)
  Receive Date: 20240925
  Receipt Date: 20240925
  Transmission Date: 20241016
  Serious: Yes (Other)
  Sender: Public
  Company Number: None

PATIENT
  Age: 31 Year
  Sex: Male

DRUGS (1)
  1. SIMPONI [Suspect]
     Active Substance: GOLIMUMAB

REACTIONS (5)
  - Paranasal sinus inflammation [None]
  - Autophony [None]
  - Headache [None]
  - Anger [None]
  - Frustration tolerance decreased [None]

NARRATIVE: CASE EVENT DATE: 20240924
